FAERS Safety Report 9534789 (Version 2)
Quarter: 2013Q3

REPORT INFORMATION
  Report Type: Spontaneous
  Country: US (occurrence: US)
  Receive Date: 20130918
  Receipt Date: 20130918
  Transmission Date: 20140515
  Serious: Yes (Other)
  Sender: FDA-Public Use
  Company Number: US-NAPPMUNDI-USA-2011-0073724

PATIENT
  Age: 42 Year
  Sex: Female
  Weight: 73.47 kg

DRUGS (4)
  1. BUTRANS [Suspect]
     Indication: PAIN
     Dosage: 10 MCG, Q1H
     Route: 062
     Dates: end: 20111109
  2. BUTRANS [Suspect]
     Dosage: 5 MCG, Q1H
     Route: 062
  3. OPANA [Suspect]
     Indication: PAIN
     Dosage: 180 MG, UNK
     Route: 048
  4. KLONOPIN [Suspect]
     Indication: ANXIETY
     Dosage: 1 MG, PRN
     Route: 048
     Dates: end: 201108

REACTIONS (14)
  - Mental status changes [Unknown]
  - Crohn^s disease [Not Recovered/Not Resolved]
  - Loss of consciousness [Unknown]
  - Impaired driving ability [Unknown]
  - Hypotension [Unknown]
  - Syncope [Recovered/Resolved]
  - Memory impairment [Unknown]
  - Extra dose administered [Unknown]
  - Product quality issue [Unknown]
  - Drug ineffective [Not Recovered/Not Resolved]
  - Application site pruritus [Not Recovered/Not Resolved]
  - Dysarthria [Unknown]
  - Somnolence [Unknown]
  - Sleep attacks [Unknown]
